FAERS Safety Report 6642801-5 (Version None)
Quarter: 2010Q1

REPORT INFORMATION
  Report Type: 
  Country: None (occurrence: None)
  Receive Date: 20100319
  Receipt Date: 20100308
  Transmission Date: 20100710
  Serious: Yes (Hospitalization, Other)
  Sender: FDA-Public Use
  Company Number: US-PFIZER INC-2009302861

PATIENT
  Sex: Female
  Weight: 82.993 kg

DRUGS (4)
  1. SUTENT [Suspect]
     Indication: METASTATIC RENAL CELL CARCINOMA
     Dosage: 50 MG, 1X/DAY, 4-2 CYCLE
     Route: 048
     Dates: start: 20091119, end: 20091201
  2. ACETYLSALICYLIC ACID [Concomitant]
     Dosage: UNK
  3. ATENOLOL [Concomitant]
     Indication: HYPERTENSION
     Dosage: UNK
  4. DARVOCET [Concomitant]

REACTIONS (9)
  - DEHYDRATION [None]
  - HEART RATE DECREASED [None]
  - HYPERTENSION [None]
  - NAUSEA [None]
  - ORAL PAIN [None]
  - OROPHARYNGEAL PAIN [None]
  - PYREXIA [None]
  - VOMITING [None]
  - YELLOW SKIN [None]
